FAERS Safety Report 10608758 (Version 1)
Quarter: 2014Q4

REPORT INFORMATION
  Report Type: Spontaneous
  Country: US (occurrence: US)
  Receive Date: 20141125
  Receipt Date: 20141125
  Transmission Date: 20150529
  Serious: Yes (Hospitalization, Other)
  Sender: FDA-Public Use
  Company Number: US-GLAXOSMITHKLINE-US2014GSK026281

PATIENT
  Sex: Male

DRUGS (2)
  1. AVANDAMET [Suspect]
     Active Substance: METFORMIN HYDROCHLORIDE\ROSIGLITAZONE MALEATE
     Indication: DIABETES MELLITUS
     Dosage: UNK
     Dates: start: 20030926, end: 20050228
  2. AVANDIA [Suspect]
     Active Substance: ROSIGLITAZONE MALEATE
     Indication: DIABETES MELLITUS
     Dosage: 2 MG, UNK
     Dates: start: 20050425, end: 20061129

REACTIONS (6)
  - Bundle branch block left [Unknown]
  - Ventricular tachycardia [Unknown]
  - Cardiomyopathy [Unknown]
  - Coronary artery disease [Unknown]
  - Left ventricular dysfunction [Unknown]
  - Cardiac failure congestive [Unknown]
